FAERS Safety Report 22227910 (Version 1)
Quarter: 2023Q2

REPORT INFORMATION
  Report Type: Spontaneous
  Country: CZ (occurrence: CZ)
  Receive Date: 20230419
  Receipt Date: 20230419
  Transmission Date: 20230721
  Serious: Yes (Other)
  Sender: FDA-Public Use
  Company Number: CZ-MYLANLABS-2023M1031756

PATIENT
  Age: 61 Year
  Sex: Male
  Weight: 50 kg

DRUGS (9)
  1. LEVETIRACETAM [Suspect]
     Active Substance: LEVETIRACETAM
     Indication: Epilepsy
     Dosage: UNK
     Route: 065
  2. CITALOPRAM [Suspect]
     Active Substance: CITALOPRAM HYDROBROMIDE
     Indication: Antidepressant therapy
     Dosage: UNK
     Route: 065
  3. SOLU-MEDROL [Concomitant]
     Active Substance: METHYLPREDNISOLONE SODIUM SUCCINATE
     Indication: Autoimmune disorder
     Dosage: TOTAL DOSE OF 5 GRAMS
     Route: 042
  4. SOLU-MEDROL [Concomitant]
     Active Substance: METHYLPREDNISOLONE SODIUM SUCCINATE
     Indication: Salivary hypersecretion
  5. PREDNISOLONE [Concomitant]
     Active Substance: PREDNISOLONE
     Indication: Autoimmune disorder
     Dosage: 60 MILLIGRAM, QD
     Route: 065
  6. VALPROATE [Concomitant]
     Active Substance: VALPROIC ACID
     Indication: Epilepsy
     Dosage: UNK
     Route: 065
  7. CARBAMAZEPINE [Concomitant]
     Active Substance: CARBAMAZEPINE
     Indication: Epilepsy
     Dosage: UNK
     Route: 065
  8. BOTULINUM TOXIN TYPE A [Concomitant]
     Active Substance: BOTULINUM TOXIN TYPE A
     Indication: Epilepsy
     Dosage: INTO BOTH PAROTID AND SUBMANDIBULAR GLANDS
     Route: 065
  9. FLEBOGAMMA DIF [Concomitant]
     Active Substance: HUMAN IMMUNOGLOBULIN G
     Indication: Epilepsy
     Dosage: 2 GRAM PER KILOGRAM
     Route: 065

REACTIONS (4)
  - Dysphoria [Unknown]
  - Drug ineffective [Unknown]
  - Depressive symptom [Unknown]
  - No adverse event [Unknown]
